FAERS Safety Report 9730624 (Version 32)
Quarter: 2016Q1

REPORT INFORMATION
  Report Type: Report from Study
  Country: CA (occurrence: CA)
  Receive Date: 20131205
  Receipt Date: 20160115
  Transmission Date: 20160526
  Serious: Yes (Other)
  Sender: FDA-Public Use
  Company Number: CA-ROCHE-1279901

PATIENT
  Age: 54 Year
  Sex: Female
  Weight: 100 kg

DRUGS (13)
  1. ACTEMRA [Suspect]
     Active Substance: TOCILIZUMAB
     Route: 042
     Dates: start: 20131115
  2. CRESTOR [Concomitant]
     Active Substance: ROSUVASTATIN CALCIUM
  3. CORTISONE [Suspect]
     Active Substance: CORTISONE\HYDROCORTISONE
     Indication: PRODUCT USED FOR UNKNOWN INDICATION
     Route: 065
     Dates: end: 20130920
  4. PLAQUENIL [Suspect]
     Active Substance: HYDROXYCHLOROQUINE SULFATE
     Indication: PRODUCT USED FOR UNKNOWN INDICATION
     Route: 065
     Dates: end: 2015
  5. ADALAT [Concomitant]
     Active Substance: NIFEDIPINE
  6. ESTROGEL [Concomitant]
     Active Substance: ESTRADIOL
  7. ACTEMRA [Suspect]
     Active Substance: TOCILIZUMAB
     Route: 042
     Dates: start: 20141106, end: 20151111
  8. ARAVA [Concomitant]
     Active Substance: LEFLUNOMIDE
  9. PROMETRIUM (CANADA) [Concomitant]
  10. ANDRIOL [Concomitant]
     Active Substance: TESTOSTERONE UNDECANOATE
  11. ACTEMRA [Suspect]
     Active Substance: TOCILIZUMAB
     Indication: RHEUMATOID ARTHRITIS
     Route: 042
     Dates: start: 20130823
  12. PNEUMONIA VACCINE [Suspect]
     Active Substance: PNEUMOCOCCAL VACCINE POLYVALENT
     Indication: PRODUCT USED FOR UNKNOWN INDICATION
     Route: 065
  13. TEVETEN [Concomitant]
     Active Substance: EPROSARTAN MESYLATE

REACTIONS (49)
  - Hepatic enzyme increased [Unknown]
  - Dizziness [Unknown]
  - Nasal congestion [Unknown]
  - Fatigue [Unknown]
  - Oedema peripheral [Not Recovered/Not Resolved]
  - Oral herpes [Recovering/Resolving]
  - Bronchitis [Recovered/Resolved]
  - Joint swelling [Unknown]
  - Blood pressure increased [Not Recovered/Not Resolved]
  - Depression [Unknown]
  - Visual field defect [Not Recovered/Not Resolved]
  - Headache [Recovering/Resolving]
  - Weight increased [Not Recovered/Not Resolved]
  - Nasopharyngitis [Recovering/Resolving]
  - Infusion related reaction [Recovered/Resolved]
  - Throat irritation [Not Recovered/Not Resolved]
  - Laceration [Recovering/Resolving]
  - Pneumonia [Unknown]
  - Tooth fracture [Unknown]
  - Influenza [Unknown]
  - Drug ineffective [Unknown]
  - Nausea [Unknown]
  - Ligament sprain [Unknown]
  - Impaired healing [Unknown]
  - Musculoskeletal stiffness [Not Recovered/Not Resolved]
  - Fatigue [Unknown]
  - Infection [Unknown]
  - Abdominal pain [Unknown]
  - Back pain [Not Recovered/Not Resolved]
  - Arthralgia [Unknown]
  - Skin ulcer [Not Recovered/Not Resolved]
  - Back pain [Unknown]
  - Haemorrhoids [Not Recovered/Not Resolved]
  - Urticaria [Unknown]
  - Pain [Unknown]
  - Blood pressure diastolic increased [Unknown]
  - Fatigue [Not Recovered/Not Resolved]
  - Fatigue [Not Recovered/Not Resolved]
  - Arthralgia [Not Recovered/Not Resolved]
  - Cellulitis [Recovering/Resolving]
  - Musculoskeletal pain [Not Recovered/Not Resolved]
  - Sinusitis [Recovered/Resolved]
  - Hot flush [Unknown]
  - Oedema peripheral [Not Recovered/Not Resolved]
  - Scratch [Unknown]
  - Local swelling [Unknown]
  - Irritable bowel syndrome [Unknown]
  - Pain in extremity [Not Recovered/Not Resolved]
  - Blood pressure increased [Unknown]

NARRATIVE: CASE EVENT DATE: 20130823
